FAERS Safety Report 21406358 (Version 2)
Quarter: 2022Q4

REPORT INFORMATION
  Report Type: Spontaneous
  Country: FR (occurrence: FR)
  Receive Date: 20221004
  Receipt Date: 20221021
  Transmission Date: 20230113
  Serious: Yes (Hospitalization, Other)
  Sender: FDA-Public Use
  Company Number: FR-SA-SAC20220311000620

PATIENT
  Age: 74 Year
  Sex: Male
  Weight: 75 kg

DRUGS (5)
  1. DUPIXENT [Suspect]
     Active Substance: DUPILUMAB
     Indication: Nasal polyps
     Dosage: 300 MG
  2. SYMBICORT [Concomitant]
     Active Substance: BUDESONIDE\FORMOTEROL FUMARATE DIHYDRATE
  3. AZATHIOPRINE [Concomitant]
     Active Substance: AZATHIOPRINE
  4. NUCALA [Concomitant]
     Active Substance: MEPOLIZUMAB
  5. PREDNISONE [Concomitant]
     Active Substance: PREDNISONE

REACTIONS (7)
  - Headache [Recovered/Resolved]
  - Epistaxis [Recovered/Resolved]
  - Hyperaesthesia [Recovered/Resolved]
  - Hyperleukocytosis [Recovered/Resolved]
  - Systemic inflammatory response syndrome [Recovered/Resolved]
  - Headache [Unknown]
  - C-reactive protein increased [Recovered/Resolved]
